FAERS Safety Report 9996424 (Version 2)
Quarter: 2014Q1

REPORT INFORMATION
  Report Type: Spontaneous
  Country: FR (occurrence: FR)
  Receive Date: 20140311
  Receipt Date: 20140320
  Transmission Date: 20141002
  Serious: Yes (Other)
  Sender: FDA-Public Use
  Company Number: FR-GLAXOSMITHKLINE-B0975503A

PATIENT
  Sex: Female

DRUGS (8)
  1. ALKERAN [Suspect]
     Indication: EWING^S SARCOMA
     Route: 042
     Dates: start: 2008, end: 2008
  2. VINCRISTINE [Suspect]
     Indication: EWING^S SARCOMA
     Route: 042
     Dates: start: 2008, end: 2008
  3. IFOSFAMIDE [Suspect]
     Indication: EWING^S SARCOMA
     Route: 042
  4. DOXORUBICIN [Suspect]
     Indication: EWING^S SARCOMA
     Route: 042
     Dates: start: 2008, end: 2008
  5. ETOPOSIDE [Suspect]
     Indication: EWING^S SARCOMA
     Route: 042
     Dates: start: 2008, end: 2008
  6. DACTINOMYCIN [Suspect]
     Indication: EWING^S SARCOMA
     Route: 042
     Dates: start: 2008, end: 2008
  7. BUSULFAN [Suspect]
     Indication: EWING^S SARCOMA
     Route: 042
     Dates: start: 2008, end: 2008
  8. ENANTONE [Concomitant]
     Indication: PRECOCIOUS PUBERTY
     Dates: start: 2007

REACTIONS (2)
  - Hypogonadism [Not Recovered/Not Resolved]
  - Delayed puberty [Not Recovered/Not Resolved]
